FAERS Safety Report 18203132 (Version 3)
Quarter: 2020Q3

REPORT INFORMATION
  Report Type: Spontaneous
  Country: GB (occurrence: GB)
  Receive Date: 20200827
  Receipt Date: 20200904
  Transmission Date: 20201103
  Serious: Yes (Death, Life-Threatening, Hospitalization, Other)
  Sender: FDA-Public Use
  Company Number: GB-ENDO PHARMACEUTICALS INC-2020-005759

PATIENT
  Age: 53 Year
  Sex: Male

DRUGS (11)
  1. MYCOPHENOLATE MOFETIL. [Concomitant]
     Active Substance: MYCOPHENOLATE MOFETIL
     Dosage: 1 G, BID
     Route: 065
  2. PREDNISOLONE. [Concomitant]
     Active Substance: PREDNISOLONE
     Indication: MYOSITIS
     Dosage: 30 MG, DAILY
     Route: 065
  3. LANSOPRAZOLE. [Concomitant]
     Active Substance: LANSOPRAZOLE
     Indication: PRODUCT USED FOR UNKNOWN INDICATION
     Dosage: UNK UNKNOWN, UNKNOWN
     Route: 065
  4. ANABOLIC STEROIDS [Suspect]
     Active Substance: UNSPECIFIED INGREDIENT
     Indication: PRODUCT USED FOR UNKNOWN INDICATION
     Dosage: UNK UNKNOWN, UNKNOWN
     Route: 065
  5. REGPARA [Suspect]
     Active Substance: CINACALCET HYDROCHLORIDE
     Indication: HYPERPARATHYROIDISM PRIMARY
     Dosage: 30 MG, BID
     Route: 065
  6. HUMAN GROWTH HORMONE, RECOMBINANT [Suspect]
     Active Substance: SOMATROPIN
     Indication: MUSCLE BUILDING THERAPY
     Dosage: 2 IU, DAILY (6?WEEKS ON/4?WEEKS OFF)
     Route: 065
  7. REGPARA [Suspect]
     Active Substance: CINACALCET HYDROCHLORIDE
     Indication: HYPERCALCAEMIA
     Dosage: 30 MG, DAILY
     Route: 065
  8. TESTIM [Suspect]
     Active Substance: TESTOSTERONE
     Indication: MUSCLE BUILDING THERAPY
     Dosage: 350 MG, DAILY, (6?WEEKS ON/4?WEEKS OFF)
     Route: 065
  9. TAMSULOSIN [Concomitant]
     Active Substance: TAMSULOSIN
     Indication: BENIGN PROSTATIC HYPERPLASIA
     Dosage: UNK UNKNOWN, UNKNOWN
     Route: 065
  10. MYCOPHENOLATE MOFETIL. [Concomitant]
     Active Substance: MYCOPHENOLATE MOFETIL
     Indication: MYOSITIS
     Dosage: 500 MG, UNKNOWN
     Route: 065
  11. PAMIDRONATE [Concomitant]
     Active Substance: PAMIDRONATE DISODIUM
     Indication: PRODUCT USED FOR UNKNOWN INDICATION
     Dosage: 60 MG, UNKNOWN
     Route: 042

REACTIONS (18)
  - Myocardial infarction [Fatal]
  - Acute kidney injury [Recovering/Resolving]
  - Constipation [Unknown]
  - Coronary artery disease [Unknown]
  - Left ventricular failure [Unknown]
  - Axillary mass [Unknown]
  - Hypercalcaemia [Recovering/Resolving]
  - Off label use [Unknown]
  - Myositis [Recovering/Resolving]
  - Left ventricular hypertrophy [Unknown]
  - Aortic stenosis [Unknown]
  - Inappropriate schedule of product administration [Unknown]
  - Rhabdomyolysis [Unknown]
  - Renal impairment [Recovering/Resolving]
  - Oedema peripheral [Unknown]
  - Chronic kidney disease [Recovering/Resolving]
  - Drug abuse [Unknown]
  - Focal segmental glomerulosclerosis [Recovering/Resolving]
